FAERS Safety Report 20263865 (Version 1)
Quarter: 2021Q4

REPORT INFORMATION
  Report Type: Spontaneous
  Country: US (occurrence: None)
  Receive Date: 20211230
  Receipt Date: 20211230
  Transmission Date: 20220303
  Serious: Yes (Hospitalization)
  Sender: FDA-Public Use
  Company Number: None

PATIENT
  Age: 74 Year
  Sex: Female
  Weight: 82.8 kg

DRUGS (6)
  1. BARICITINIB [Suspect]
     Active Substance: BARICITINIB
     Indication: COVID-19
     Dosage: FREQUENCY : DAILY;?
     Route: 048
     Dates: start: 20211216, end: 20211224
  2. Albuterol HFA, 2 puffs, every 4 hrs PRN [Concomitant]
     Dates: start: 20211209
  3. Levothyroxine, 50 mcg, QD [Concomitant]
     Dates: start: 20210407
  4. Propranolol, 120 mg, QD [Concomitant]
     Dates: start: 20130211
  5. Lovastatin, 80 mg, QD [Concomitant]
     Dates: start: 20130211
  6. Amitriptvline, 25 mg, QD [Concomitant]
     Dates: start: 20130211

REACTIONS (8)
  - Fall [None]
  - Head injury [None]
  - Asthenia [None]
  - Leukocytosis [None]
  - Heart rate increased [None]
  - Sepsis [None]
  - Pneumonia [None]
  - Pancreatitis [None]

NARRATIVE: CASE EVENT DATE: 20211225
